FAERS Safety Report 23616229 (Version 1)
Quarter: 2024Q1

REPORT INFORMATION
  Report Type: Spontaneous
  Country: FR (occurrence: FR)
  Receive Date: 20240311
  Receipt Date: 20240311
  Transmission Date: 20240410
  Serious: Yes (Hospitalization, Other)
  Sender: FDA-Public Use
  Company Number: None

PATIENT

DRUGS (2)
  1. ALBUTEROL [Suspect]
     Active Substance: ALBUTEROL
     Indication: Asthma
     Dosage: 100 ?G
     Route: 055
     Dates: end: 20240209
  2. TIOTROPIUM [Concomitant]
     Active Substance: TIOTROPIUM
     Indication: Asthma
     Dosage: 5 ?G, QD
     Route: 055
     Dates: end: 20240209

REACTIONS (1)
  - Lactic acidosis [Recovered/Resolved]

NARRATIVE: CASE EVENT DATE: 20240209
